FAERS Safety Report 7315127-4 (Version None)
Quarter: 2011Q1

REPORT INFORMATION
  Report Type: 
  Country: None (occurrence: None)
  Receive Date: 20110225
  Receipt Date: 20110214
  Transmission Date: 20110831
  Serious: Yes (Other)
  Sender: FDA-Public Use
  Company Number: FR-SANOFI-AVENTIS-2011SA009456

PATIENT
  Age: 61 Year
  Sex: Male

DRUGS (3)
  1. ELOXATIN [Suspect]
     Indication: GASTROINTESTINAL CARCINOMA
     Route: 042
     Dates: start: 20110201, end: 20110201
  2. 5-FU [Concomitant]
     Indication: GASTROINTESTINAL CARCINOMA
     Route: 042
     Dates: start: 20110201, end: 20110201
  3. FOLINIC ACID [Concomitant]
     Indication: GASTROINTESTINAL CARCINOMA
     Route: 042
     Dates: start: 20110201, end: 20110201

REACTIONS (1)
  - RESPIRATORY DISTRESS [None]
